FAERS Safety Report 8565368-3 (Version None)
Quarter: 2012Q3

REPORT INFORMATION
  Report Type: 
  Country: None (occurrence: None)
  Receive Date: 20120803
  Receipt Date: 20120801
  Transmission Date: 20120928
  Serious: Yes (Hospitalization)
  Sender: FDA-Public Use
  Company Number: GB-ROCHE-1096144

PATIENT
  Age: 53 Year
  Sex: Female

DRUGS (12)
  1. NAPROXEN [Concomitant]
     Route: 065
  2. PREDNISOLONE [Concomitant]
     Indication: RHEUMATOID ARTHRITIS
     Route: 048
     Dates: start: 19891001
  3. ATENOLOL [Concomitant]
     Route: 065
  4. MABTHERA [Suspect]
     Indication: RHEUMATOID ARTHRITIS
     Route: 042
     Dates: start: 20111208, end: 20111222
  5. CALCICHEW D3 [Concomitant]
     Route: 048
  6. FOLIC ACID [Concomitant]
     Indication: RHEUMATOID ARTHRITIS
     Route: 048
     Dates: start: 19980501
  7. OMEPRAZOLE [Concomitant]
     Route: 048
  8. NITROGLYCERIN [Concomitant]
     Route: 065
  9. ASPIRIN [Concomitant]
     Route: 065
  10. SIMVASTATIN [Concomitant]
     Route: 065
  11. MABTHERA [Suspect]
     Route: 042
     Dates: start: 20100817, end: 20100831
  12. METHOTREXATE [Concomitant]
     Indication: RHEUMATOID ARTHRITIS
     Route: 048
     Dates: start: 19980501

REACTIONS (1)
  - BREAST CANCER [None]
